FAERS Safety Report 19199846 (Version 1)
Quarter: 2021Q2

REPORT INFORMATION
  Report Type: Spontaneous
  Country: US (occurrence: US)
  Receive Date: 20210430
  Receipt Date: 20210430
  Transmission Date: 20210717
  Serious: Yes (Disabling, Other)
  Sender: FDA-Public Use
  Company Number: None

PATIENT
  Age: 43 Year
  Sex: Female
  Weight: 67.5 kg

DRUGS (6)
  1. LIOTHTHYRONINE [Concomitant]
  2. DULOXETINE. [Concomitant]
     Active Substance: DULOXETINE
  3. ESTRADIOL. [Concomitant]
     Active Substance: ESTRADIOL
  4. LEVOTHROXINE [Concomitant]
     Active Substance: LEVOTHYROXINE
  5. DULOXETINE. [Suspect]
     Active Substance: DULOXETINE
     Indication: NEURALGIA
     Dosage: ?          QUANTITY:60 CAPSULE(S);?
     Route: 048
  6. MELOXICAM. [Concomitant]
     Active Substance: MELOXICAM

REACTIONS (6)
  - Impaired work ability [None]
  - Fall [None]
  - Cerebral disorder [None]
  - Multiple injuries [None]
  - Memory impairment [None]
  - Balance disorder [None]

NARRATIVE: CASE EVENT DATE: 20130425
